FAERS Safety Report 7859110-9 (Version None)
Quarter: 2011Q4

REPORT INFORMATION
  Report Type: 
  Country: None (occurrence: None)
  Receive Date: 20111027
  Receipt Date: 20111018
  Transmission Date: 20120403
  Serious: Yes (Other)
  Sender: FDA-Public Use
  Company Number: PHEH2011US06201

PATIENT
  Sex: Female
  Weight: 68.027 kg

DRUGS (12)
  1. ACETAMINOPHEN [Concomitant]
     Dosage: 500 MG, QD
  2. CHANTIX [Concomitant]
     Dosage: 1 DF, BID
     Route: 048
  3. BACLOFEN [Concomitant]
     Dosage: 5 MG, BID
     Route: 048
  4. STOOL SOFTENER [Concomitant]
     Dosage: UNK UKN, QW2
  5. OXYBUTYNIN [Concomitant]
     Dosage: 2 DF, UNK
     Route: 048
  6. EPIPEN [Concomitant]
     Dosage: 0.3 MG / 0.3ML, PRN
  7. VITAMIN B-12 [Concomitant]
     Dosage: 500 UG, QD
  8. AMINOPYRIDINE [Concomitant]
     Dosage: 1 DF, BID
     Route: 048
  9. GILENYA [Suspect]
     Indication: RELAPSING-REMITTING MULTIPLE SCLEROSIS
     Dosage: 0.5 MG, QD
     Route: 048
     Dates: start: 20110527
  10. ASPIRIN [Concomitant]
     Dosage: 81 MG, QD
     Route: 048
  11. IBUPROFEN [Concomitant]
     Dosage: 400 MG, BID
  12. VITAMIN D [Concomitant]
     Dosage: 4000 IU, QD

REACTIONS (7)
  - PARAESTHESIA [None]
  - CONTUSION [None]
  - HYPOAESTHESIA [None]
  - SALIVARY GLAND ENLARGEMENT [None]
  - DYSKINESIA [None]
  - RASH [None]
  - HEAT RASH [None]
